FAERS Safety Report 9412312 (Version 2)
Quarter: 2013Q3

REPORT INFORMATION
  Report Type: Spontaneous
  Country: US (occurrence: US)
  Receive Date: 20130722
  Receipt Date: 20130820
  Transmission Date: 20140515
  Serious: Yes (Other)
  Sender: FDA-Public Use
  Company Number: PHEH2013US015459

PATIENT
  Sex: Female

DRUGS (4)
  1. TRILEPTAL [Suspect]
     Indication: CONVULSION
     Dosage: 600 MG, UNK
  2. TRILEPTAL [Suspect]
     Dosage: 300 MG, UNK
  3. LOVENOX [Concomitant]
  4. BABY ASPIRIN [Concomitant]
     Dosage: 81 MG, QD

REACTIONS (11)
  - Hepatotoxicity [Unknown]
  - Coagulopathy [Unknown]
  - Cerebrovascular accident [Unknown]
  - Hepatic enzyme increased [Unknown]
  - Alanine aminotransferase increased [Unknown]
  - Aspartate aminotransferase increased [Unknown]
  - Memory impairment [Unknown]
  - Anxiety [Unknown]
  - Hyponatraemia [Unknown]
  - Confusional state [Unknown]
  - Convulsion [Unknown]
